FAERS Safety Report 9559232 (Version 1)
Quarter: 2013Q3

REPORT INFORMATION
  Report Type: Spontaneous
  Country: GB (occurrence: GB)
  Receive Date: 20130927
  Receipt Date: 20130927
  Transmission Date: 20140515
  Serious: Yes (Hospitalization)
  Sender: FDA-Public Use
  Company Number: GB-MERCK-1309GBR010077

PATIENT
  Age: 77 Year
  Sex: Female

DRUGS (11)
  1. SIMVASTATIN [Suspect]
     Dosage: 40 MG, QD
     Dates: start: 2008
  2. ADCAL-D3 [Concomitant]
     Dosage: UNK
  3. ALENDRONIC ACID [Concomitant]
     Dosage: UNK
  4. CLOPIDOGREL [Concomitant]
     Dosage: UNK
  5. DIGOXIN [Concomitant]
     Dosage: UNK
  6. FENTANYL [Concomitant]
     Dosage: UNK
  7. FOLIC ACID [Concomitant]
     Dosage: UNK
  8. LANSOPRAZOLE [Concomitant]
     Dosage: UNK
  9. LEVOTHYROXINE SODIUM [Concomitant]
     Dosage: UNK
  10. PREDNISOLONE [Concomitant]
     Dosage: UNK
  11. RAMIPRIL [Concomitant]
     Dosage: UNK

REACTIONS (1)
  - Pulmonary fibrosis [Not Recovered/Not Resolved]
